FAERS Safety Report 5639363-8 (Version None)
Quarter: 2008Q1

REPORT INFORMATION
  Report Type: 
  Country: None (occurrence: None)
  Receive Date: 20080226
  Receipt Date: 20080214
  Transmission Date: 20080703
  Serious: Yes (Other)
  Sender: FDA-Public Use
  Company Number: CH-PFIZER INC-2007002396

PATIENT
  Sex: Female

DRUGS (2)
  1. XANAX [Suspect]
     Indication: DRUG DEPENDENCE
     Route: 048
  2. STILNOX [Concomitant]
     Route: 048

REACTIONS (2)
  - DRUG EXPOSURE DURING PREGNANCY [None]
  - FOETAL GROWTH RETARDATION [None]
